FAERS Safety Report 8833938 (Version 1)
Quarter: 2012Q4

REPORT INFORMATION
  Report Type: 
  Country: DE (occurrence: DE)
  Receive Date: 20121010
  Receipt Date: 20121010
  Transmission Date: 20130627
  Serious: Yes (Other)
  Sender: FDA-Public Use
  Company Number: DE-MYLANLABS-2012S1020212

PATIENT
  Age: 55 Year
  Sex: Female
  Weight: 78 kg

DRUGS (1)
  1. VENLAFAXIN [Suspect]
     Indication: POST POLIO SYNDROME
     Route: 048
     Dates: start: 201205

REACTIONS (1)
  - Photodermatosis [Not Recovered/Not Resolved]
